FAERS Safety Report 4464973-3 (Version None)
Quarter: 2004Q4

REPORT INFORMATION
  Report Type: 
  Country: None (occurrence: None)
  Receive Date: 20041004
  Receipt Date: 20040430
  Transmission Date: 20050328
  Serious: No
  Sender: FDA-Public Use
  Company Number: 368173

PATIENT
  Sex: Female

DRUGS (2)
  1. COREG [Suspect]
     Dosage: 25MG TWICE PER DAY
     Route: 048
  2. CELEBREX [Concomitant]

REACTIONS (2)
  - RASH [None]
  - RASH PRURITIC [None]
